FAERS Safety Report 8119221 (Version 3)
Quarter: 2013Q3

REPORT INFORMATION
  Report Type: Spontaneous
  Country: JP (occurrence: JP)
  Receive Date: 20110902
  Receipt Date: 20130717
  Transmission Date: 20140515
  Serious: Yes (Hospitalization, Other)
  Sender: FDA-Public Use
  Company Number: JP-MERCK-1108USA03263

PATIENT
  Age: 11 Year
  Sex: Male

DRUGS (35)
  1. PEPCID [Suspect]
     Dosage: 15 MG, BID
     Route: 048
     Dates: start: 20100626, end: 20100715
  2. CEFAZOLIN [Suspect]
     Dosage: 1000 MG, BID
     Route: 042
     Dates: start: 20100622, end: 20100624
  3. PEPCID I.V. [Suspect]
     Dosage: 16 MG, BID
     Route: 042
     Dates: start: 20100617, end: 20100626
  4. DORMICUM (MIDAZOLAM) [Suspect]
     Dosage: 10 MG, QD
     Route: 042
     Dates: start: 20100617, end: 20100709
  5. PHENOBAL [Suspect]
     Dosage: 100 MG, BID
     Route: 048
     Dates: start: 20100622, end: 20100709
  6. CERCINE [Suspect]
     Dosage: 40 MG, UNK
     Route: 048
     Dates: start: 20100622, end: 20100722
  7. CERCINE [Suspect]
     Dosage: 4 ML, UNK
     Route: 048
     Dates: start: 20110702, end: 20110722
  8. TAKEPRON [Suspect]
     Dosage: 15 MG, BID
     Route: 048
     Dates: start: 20100628, end: 20100728
  9. ROCEPHIN [Suspect]
     Indication: INFECTION
     Dosage: 2000 MG, QD
     Route: 042
     Dates: start: 20100630, end: 20100707
  10. RISPERDAL [Suspect]
     Dosage: 0.3 ML, QD
     Route: 048
     Dates: start: 20100702, end: 20100714
  11. CALONAL [Suspect]
     Indication: PYREXIA
     Dosage: 300 MG, QD
     Route: 048
     Dates: start: 20100627, end: 20100716
  12. MIDAZOLAM [Suspect]
     Dosage: 10 MG, QD
     Route: 042
     Dates: start: 20100621, end: 20100621
  13. MORPHINA [Suspect]
     Dosage: 2 MG/KG, QD
     Route: 042
     Dates: start: 20100621, end: 20100709
  14. MK-0805 [Suspect]
     Dosage: 10 MG, QID
     Route: 048
     Dates: start: 20100626, end: 20100706
  15. ALDACTONE A [Suspect]
     Dosage: 10 MG, QID
     Route: 048
     Dates: start: 20100626, end: 20100706
  16. LACTOBACILLUS CASEI [Suspect]
     Dosage: 500 MG, TID
     Route: 048
     Dates: start: 20100702, end: 20100709
  17. DEPAS [Suspect]
     Dosage: 1 DF, QD
     Route: 048
     Dates: start: 20100701, end: 20100701
  18. TRICLORYL [Suspect]
     Dosage: 20 ML, QD
     Route: 048
     Dates: start: 20100628, end: 20100705
  19. LAXOBERON [Suspect]
     Dosage: 10 ML, QD
     Route: 048
     Dates: start: 20100620, end: 20100620
  20. HEPARIN SODIUM [Suspect]
     Dosage: 2 DF, UID/QD
     Route: 042
     Dates: start: 20100617
  21. GLYCEOL (FRUCTOSE (+) GLYCERIN (+) SODIUM CHLORIDE) [Suspect]
     Dosage: 200 ML, TID
     Route: 042
     Dates: start: 20100617, end: 20100618
  22. DECADRON [Suspect]
     Dosage: 2 MG, TID
     Route: 042
     Dates: start: 20100617, end: 20100623
  23. ATROPINA SULFATO [Suspect]
     Dosage: 0.5 MG, QD
     Route: 042
     Dates: start: 20100617, end: 20100622
  24. EPINEPHRINE [Suspect]
     Dosage: 10 MG, QD
     Route: 042
     Dates: start: 20100621, end: 20100621
  25. CALCICOL [Suspect]
     Dosage: 10 ML, QD
     Route: 042
     Dates: start: 20100621, end: 20100621
  26. FENTANYL [Suspect]
     Route: 042
     Dates: start: 20100621, end: 20100708
  27. ULTIVA [Suspect]
     Route: 042
     Dates: start: 20100621, end: 20100708
  28. NICARPINE [Suspect]
     Route: 042
     Dates: start: 20100622, end: 20100624
  29. PRECEDEX [Suspect]
     Route: 042
     Dates: start: 20100704, end: 20100705
  30. ROCURONIUM BROMIDE [Suspect]
     Dosage: 50 MG, QD
     Route: 042
     Dates: start: 20100617, end: 20100706
  31. XYLOCAINE [Suspect]
     Dosage: 10 ML, QD
     Route: 042
     Dates: start: 20100621, end: 20100709
  32. PANTOL [Suspect]
     Dosage: 50 MG, BID
     Route: 042
     Dates: start: 20100604, end: 20100705
  33. ANHIBA [Suspect]
     Route: 054
     Dates: start: 20100630, end: 20100716
  34. CERCINE [Suspect]
     Dosage: 32 ML, UNK
     Route: 042
     Dates: start: 20100702, end: 20100722
  35. GLYCERIN/GLYCERIN (+) MENTHOL (+) XYLITOL [Suspect]
     Indication: CONSTIPATION
     Route: 054
     Dates: start: 20100621

REACTIONS (1)
  - Drug reaction with eosinophilia and systemic symptoms [Recovered/Resolved]
